FAERS Safety Report 19487734 (Version 2)
Quarter: 2021Q4

REPORT INFORMATION
  Report Type: Spontaneous
  Country: FR (occurrence: FR)
  Receive Date: 20210702
  Receipt Date: 20211130
  Transmission Date: 20220303
  Serious: Yes (Other)
  Sender: FDA-Public Use
  Company Number: FR-JNJFOC-20210617360

PATIENT
  Age: 65 Year
  Sex: Male

DRUGS (1)
  1. HALDOL [Suspect]
     Active Substance: HALOPERIDOL
     Indication: Schizophrenia
     Route: 048
     Dates: start: 20201105

REACTIONS (2)
  - Incorrect product dosage form administered [Unknown]
  - Off label use [Unknown]

NARRATIVE: CASE EVENT DATE: 20201105
